FAERS Safety Report 7136188-1 (Version None)
Quarter: 2010Q4

REPORT INFORMATION
  Report Type: 
  Country: None (occurrence: None)
  Receive Date: 20101119
  Receipt Date: 20100407
  Transmission Date: 20110411
  Serious: Yes (Other)
  Sender: FDA-Public Use
  Company Number: DSA_44222_2010

PATIENT
  Age: 61 Year
  Sex: Female

DRUGS (1)
  1. XENAZINE [Suspect]
     Indication: BASAL GANGLION DEGENERATION
     Dosage: (12.5 MG QD ORAL)
     Route: 048
     Dates: start: 20091022, end: 20100407

REACTIONS (1)
  - DRUG INTOLERANCE [None]
